FAERS Safety Report 8848059 (Version 1)
Quarter: 2012Q4

REPORT INFORMATION
  Report Type: Report from Study
  Country: HU (occurrence: HU)
  Receive Date: 20121018
  Receipt Date: 20121018
  Transmission Date: 20130627
  Serious: Yes (Hospitalization)
  Sender: FDA-Public Use
  Company Number: HU-SHIRE-ALL1-2012-02984

PATIENT
  Age: 31 None
  Sex: Female
  Weight: 70 kg

DRUGS (6)
  1. PRUCALOPRIDE [Suspect]
     Indication: CONSTIPATION
     Dosage: 2 mg, 1x/day:qd
     Route: 048
     Dates: start: 20111228, end: 20120614
  2. NOACID                             /00057401/ [Concomitant]
     Indication: GASTROOESOPHAGEAL REFLUX DISEASE
     Dosage: UNK UNK, Unknown
     Route: 065
     Dates: start: 2003
  3. DIVASCAN [Concomitant]
     Indication: MIGRAINE
     Dosage: UNK UNK, Unknown
     Route: 065
     Dates: start: 2010
  4. TRI-REGOL                          /00022701/ [Concomitant]
     Indication: CONTRACEPTION
     Dosage: UNK, Unknown
     Route: 065
     Dates: start: 2003
  5. VENTOLIN                           /00139501/ [Concomitant]
     Indication: ASTHMA
     Dosage: UNK, Unknown
     Route: 065
     Dates: start: 2010
  6. SYMBICORT [Concomitant]
     Indication: ASTHMA
     Dosage: UNK, Unknown
     Route: 065
     Dates: start: 2011

REACTIONS (2)
  - Personality disorder [Recovered/Resolved]
  - Abnormal behaviour [None]
